FAERS Safety Report 20028600 (Version 1)
Quarter: 2021Q4

REPORT INFORMATION
  Report Type: Spontaneous
  Country: US (occurrence: US)
  Receive Date: 20211103
  Receipt Date: 20211103
  Transmission Date: 20220303
  Serious: Yes (Other)
  Sender: FDA-Public Use
  Company Number: US-BoehringerIngelheim-2021-BI-134963

PATIENT
  Sex: Female

DRUGS (4)
  1. JARDIANCE [Suspect]
     Active Substance: EMPAGLIFLOZIN
     Indication: Diabetes mellitus
     Dosage: UNKNOWN
  2. RYBELSUS [Concomitant]
     Active Substance: SEMAGLUTIDE
     Indication: Product used for unknown indication
     Dosage: UNKNOWN
  3. HUMULIN N [Concomitant]
     Active Substance: INSULIN HUMAN
     Indication: Product used for unknown indication
     Dosage: UNKNOWN
  4. IMBRUVICA [Concomitant]
     Active Substance: IBRUTINIB
     Indication: Product used for unknown indication

REACTIONS (14)
  - Cellulitis [Unknown]
  - Blood glucose increased [Unknown]
  - Memory impairment [Unknown]
  - Blood immunoglobulin G decreased [Unknown]
  - Lymphoedema [Unknown]
  - Peripheral swelling [Unknown]
  - Hypertension [Unknown]
  - Oedema [Unknown]
  - Oedema peripheral [Unknown]
  - Weight decreased [Unknown]
  - Asthenia [Unknown]
  - Swelling [Unknown]
  - Asthenia [Unknown]
  - Gait disturbance [Unknown]
